FAERS Safety Report 6620541-6 (Version None)
Quarter: 2010Q1

REPORT INFORMATION
  Report Type: 
  Country: None (occurrence: None)
  Receive Date: 20100309
  Receipt Date: 20100302
  Transmission Date: 20100710
  Serious: Yes (Other)
  Sender: FDA-Public Use
  Company Number: BR-ELI_LILLY_AND_COMPANY-BR201003001168

PATIENT
  Sex: Female
  Weight: 91 kg

DRUGS (6)
  1. BYETTA [Suspect]
     Indication: TYPE 2 DIABETES MELLITUS
     Dosage: UNK, 2/D
     Route: 058
     Dates: start: 20091001
  2. ANCORON [Concomitant]
     Dosage: 200 MG, UNKNOWN
     Route: 065
  3. GLIBENCLAMIDE [Concomitant]
     Dosage: UNK, UNKNOWN
     Route: 065
  4. METFORMIN HYDROCHLORIDE [Concomitant]
     Dosage: 850 MG, UNKNOWN
     Route: 065
  5. VITAMIN E [Concomitant]
     Dosage: UNK, UNKNOWN
     Route: 065
  6. VITAMIN C [Concomitant]
     Dosage: UNK, UNKNOWN
     Route: 065

REACTIONS (4)
  - ARRHYTHMIA [None]
  - DIZZINESS [None]
  - NAUSEA [None]
  - PALLOR [None]
